FAERS Safety Report 23720212 (Version 1)
Quarter: 2024Q2

REPORT INFORMATION
  Report Type: Spontaneous
  Country: NL (occurrence: NL)
  Receive Date: 20240408
  Receipt Date: 20240408
  Transmission Date: 20240716
  Serious: Yes (Hospitalization)
  Sender: FDA-Public Use
  Company Number: None

PATIENT
  Age: 78 Year
  Sex: Female
  Weight: 75 kg

DRUGS (25)
  1. CLINDAMYCIN [Suspect]
     Active Substance: CLINDAMYCIN
     Indication: Device related infection
     Dosage: 600 MILLIGRAM, Q8H (3 TIMES DAILY 2 PIECES )
     Route: 065
     Dates: start: 20240306
  2. METOCLOPRAMIDE [Concomitant]
     Active Substance: METOCLOPRAMIDE
     Dosage: TABLET, 10 MG (MILLIGRAM)
     Route: 065
  3. FRAGMIN [Concomitant]
     Active Substance: DALTEPARIN SODIUM
     Dosage: 15000IE/0,6ML
     Route: 065
  4. LINAGLIPTIN [Concomitant]
     Active Substance: LINAGLIPTIN
     Dosage: TABLET, 5 MG (MILLIGRAM)
     Route: 065
  5. LANOXIN PG [Concomitant]
     Dosage: TABLET, 0,0625 MG (MILLIGRAM)
     Route: 065
  6. ISOPHANE INSULIN [Concomitant]
     Active Substance: INSULIN NOS
     Dosage: SUSPENSION FOR INJECTION, 100 IE/ML (UNITS PER MILLILITER)
     Route: 065
  7. ESOMEPRAZOLE [Concomitant]
     Active Substance: ESOMEPRAZOLE
     Dosage: GASTRO-RESISTANT CAPSULE, 20 MG (MILLIGRAMS)
     Route: 065
  8. PAROXETINE [Concomitant]
     Active Substance: PAROXETINE
     Dosage: TABLET, 20 MG (MILLIGRAM)
     Route: 065
  9. PREDNISOLONE [Concomitant]
     Active Substance: PREDNISOLONE
     Dosage: TABLET, 5 MG (MILLIGRAM)
     Route: 065
  10. LIVSANE PARACETAMOL [Concomitant]
     Dosage: TABLET, 500 MG (MILLIGRAM)
     Route: 065
  11. PROMETHAZINE [Concomitant]
     Active Substance: PROMETHAZINE HYDROCHLORIDE
     Dosage: COATED TABLET, 25 MG (MILLIGRAM)
     Route: 065
  12. OXYCODONE [Concomitant]
     Active Substance: OXYCODONE\OXYCODONE HYDROCHLORIDE
     Dosage: CAPSULE, 5 MG (MILLIGRAM)
     Route: 065
  13. CALCIUM CARBONATE\CHOLECALCIFEROL [Concomitant]
     Active Substance: CALCIUM CARBONATE\CHOLECALCIFEROL
     Dosage: 500MG/400IE TABLET
     Route: 065
  14. ALENDRONIC ACID [Concomitant]
     Active Substance: ALENDRONIC ACID
     Dosage: TABLET, 70 MG (MILLIGRAM)
     Route: 065
  15. ALLOPURINOL [Concomitant]
     Active Substance: ALLOPURINOL
     Dosage: TABLET, 300 MG (MILLIGRAM)
     Route: 065
  16. TRIAMCINOLONE ACETONIDE [Concomitant]
     Active Substance: TRIAMCINOLONE ACETONIDE
     Dosage: CREAM, 1 MG/G (MILLIGRAM PER GRAM)
     Route: 065
  17. GLICLAZIDE [Concomitant]
     Active Substance: GLICLAZIDE
     Dosage: REGULATED-RELEASE TABLET, 30 MG (MILLIGRAMS
     Route: 065
  18. HYPROMELLOSES [Concomitant]
     Active Substance: HYPROMELLOSES
     Dosage: EYE DROPS, 3.2 MG/ML (MILLIGRAMS PER MILLILITER)
     Route: 065
  19. TEMAZEPAM [Concomitant]
     Active Substance: TEMAZEPAM
     Dosage: CAPSULE, 10 MG (MILLIGRAM)
     Route: 065
  20. POLYETHYLENE GLYCOLS [Concomitant]
     Active Substance: POLYETHYLENE GLYCOLS
     Dosage: POWDER FOR DRINK
     Route: 065
  21. ANTISCHIMMELCREME MICONAZOLNITRAAT [Concomitant]
     Dosage: CREAM, 20 MG/G (MILLIGRAM PER GRAM)
     Route: 065
  22. EZETIMIBE [Concomitant]
     Active Substance: EZETIMIBE
     Dosage: TABLET, 10 MG (MILLIGRAM)
     Route: 065
  23. METOPROLOL [Concomitant]
     Active Substance: METOPROLOL
     Dosage: TABLET, 100 MG (MILLIGRAM)
     Route: 065
  24. ELIQUIS [Concomitant]
     Active Substance: APIXABAN
     Dosage: TABLET, 5 MG (MILLIGRAM)
     Route: 065
  25. CIPROFLOXACIN [Concomitant]
     Active Substance: CIPROFLOXACIN
     Dosage: 500 MILLIGRAM
     Route: 065

REACTIONS (2)
  - Vomiting [Recovering/Resolving]
  - Nausea [Not Recovered/Not Resolved]
